FAERS Safety Report 4690000-9 (Version None)
Quarter: 2005Q2

REPORT INFORMATION
  Report Type: 
  Country: None (occurrence: None)
  Receive Date: 20050513
  Receipt Date: 20050225
  Transmission Date: 20051028
  Serious: Yes (Other)
  Sender: FDA-Public Use
  Company Number: 16866

PATIENT
  Sex: Male
  Weight: 85.2762 kg

DRUGS (1)
  1. DIPYRIDAMOLE INJ. 10MG/2ML - BEN VENUE LABS, INC. [Suspect]
     Indication: CARDIAC STRESS TEST
     Dosage: 47.9MG
     Dates: start: 20041207

REACTIONS (2)
  - CHEST DISCOMFORT [None]
  - FATIGUE [None]
